FAERS Safety Report 15193283 (Version 1)
Quarter: 2018Q3

REPORT INFORMATION
  Report Type: Spontaneous
  Country: US (occurrence: US)
  Receive Date: 20180626
  Receipt Date: 20180626
  Transmission Date: 20181010
  Serious: Yes (Disabling)
  Sender: FDA-Public Use
  Company Number: None

PATIENT
  Age: 43 Year
  Sex: Male
  Weight: 83.25 kg

DRUGS (4)
  1. IBUPROFEN. [Concomitant]
     Active Substance: IBUPROFEN
  2. HYDROCHLOROTHIAZIDE. [Concomitant]
     Active Substance: HYDROCHLOROTHIAZIDE
  3. FLUTICASONE PROPIONATE NASAL SPRAY [Suspect]
     Active Substance: FLUTICASONE PROPIONATE
     Indication: INFLUENZA
     Dosage: ?          QUANTITY:2 PUFF(S);?
     Route: 055
  4. FLUTICASONE PROPIONATE NASAL SPRAY [Suspect]
     Active Substance: FLUTICASONE PROPIONATE
     Indication: SEASONAL ALLERGY
     Dosage: ?          QUANTITY:2 PUFF(S);?
     Route: 055

REACTIONS (9)
  - Multiple allergies [None]
  - Dyspepsia [None]
  - Influenza [None]
  - Tonsillar disorder [None]
  - Throat irritation [None]
  - Product contamination physical [None]
  - Vocal cord disorder [None]
  - Sinusitis [None]
  - Product use issue [None]

NARRATIVE: CASE EVENT DATE: 20180610
